FAERS Safety Report 8010468-X (Version None)
Quarter: 2011Q4

REPORT INFORMATION
  Report Type: 
  Country: None (occurrence: None)
  Receive Date: 20111223
  Receipt Date: 20111223
  Transmission Date: 20120403
  Serious: Yes (Life-Threatening, Hospitalization, Disabling, Other)
  Sender: FDA-Public Use
  Company Number: None

PATIENT
  Age: 36 Year
  Sex: Male
  Weight: 90.7194 kg

DRUGS (7)
  1. GLUCOVANCE [Concomitant]
  2. GLUCOPHAGE XR [Concomitant]
  3. ACTOS [Suspect]
     Indication: TYPE 2 DIABETES MELLITUS
     Dosage: 45 MG A DAY 047
     Route: 048
     Dates: start: 20020208, end: 20021002
  4. PAXIL [Concomitant]
  5. METFORMIN HCL [Concomitant]
  6. LEXAPRO [Concomitant]
  7. SEROQUEL [Concomitant]

REACTIONS (2)
  - DRUG INTOLERANCE [None]
  - WEIGHT DECREASED [None]
